FAERS Safety Report 8607773-2 (Version None)
Quarter: 2012Q3

REPORT INFORMATION
  Report Type: 
  Country: None (occurrence: None)
  Receive Date: 20120821
  Receipt Date: 20120817
  Transmission Date: 20120928
  Serious: Yes (Hospitalization, Other)
  Sender: FDA-Public Use
  Company Number: PHEH2009US00488

PATIENT
  Sex: Male

DRUGS (35)
  1. ASPIRIN [Concomitant]
  2. COUMADIN [Concomitant]
  3. REVLIMID [Concomitant]
     Dosage: 5 MG, QD
     Route: 048
  4. AREDIA [Suspect]
     Indication: BONE LOSS
     Dosage: 90 MG, QMO
     Dates: start: 20020101
  5. EFFEXOR [Concomitant]
  6. LOTENSIN [Concomitant]
     Dosage: 20 MG, UNK
  7. AREDIA [Suspect]
     Indication: OSTEOPOROSIS
  8. IPRATROPIUM BROMIDE [Concomitant]
  9. LYRICA [Concomitant]
     Dosage: 20 MG, QD
     Route: 048
  10. THALOMID [Concomitant]
     Dosage: 50 MG, QHS
  11. FLOMAX [Concomitant]
     Dosage: 0.4 MG, QHS
     Route: 048
  12. CARTIA XT [Concomitant]
  13. ANUSOL-HC                               /USA/ [Concomitant]
  14. AVANDIA [Concomitant]
  15. ZOLOFT [Concomitant]
     Dosage: 50 MG, UNK
  16. PROCRIT [Concomitant]
  17. LANTUS [Concomitant]
  18. ELAVIL [Concomitant]
  19. HYTRIN [Concomitant]
  20. ZOMETA [Suspect]
     Indication: OSTEOPOROSIS
  21. COUMADIN [Concomitant]
  22. PSYLLIUM HUSK [Concomitant]
     Dosage: 1 DF, QD
     Route: 048
  23. AMBIEN [Concomitant]
     Dosage: 10 MG, QHS
     Route: 048
  24. PREVACID [Concomitant]
     Dosage: 30 MG, BID
     Route: 048
  25. ZOMETA [Suspect]
     Indication: BONE LOSS
     Dosage: 4 MG, QMO
     Dates: end: 20060401
  26. REMERON [Concomitant]
  27. PRINIVIL [Concomitant]
  28. PREDNISONE [Concomitant]
     Dosage: 20 MG, UNK
  29. ATIVAN [Concomitant]
  30. SEROQUEL [Concomitant]
  31. CORDARONE [Concomitant]
  32. PERIDEX [Concomitant]
  33. FUROSEMIDE [Concomitant]
  34. VELOCEF [Concomitant]
     Dosage: 250 MG, UNK
  35. ALEVE [Concomitant]
     Dosage: 220 MG, QD
     Route: 048

REACTIONS (100)
  - METABOLIC ACIDOSIS [None]
  - NAUSEA [None]
  - CIRCULATORY COLLAPSE [None]
  - BRAIN INJURY [None]
  - OSTEONECROSIS OF JAW [None]
  - ANXIETY [None]
  - GINGIVAL BLEEDING [None]
  - GENERAL PHYSICAL HEALTH DETERIORATION [None]
  - PANCYTOPENIA [None]
  - TYPE 2 DIABETES MELLITUS [None]
  - HYPOTHYROIDISM [None]
  - BASOSQUAMOUS CARCINOMA [None]
  - PAIN [None]
  - EXPOSED BONE IN JAW [None]
  - RENAL CYST [None]
  - BONE NEOPLASM MALIGNANT [None]
  - LEFT ATRIAL DILATATION [None]
  - OEDEMA PERIPHERAL [None]
  - TRICUSPID VALVE INCOMPETENCE [None]
  - SINUS ARRHYTHMIA [None]
  - PNEUMONIA [None]
  - HYPOXIA [None]
  - BACTERAEMIA [None]
  - FALL [None]
  - GASTROENTERITIS [None]
  - MUSCULOSKELETAL PAIN [None]
  - RECTAL HAEMORRHAGE [None]
  - NASAL CONGESTION [None]
  - BENIGN COLONIC NEOPLASM [None]
  - HAEMATOCHEZIA [None]
  - DIARRHOEA [None]
  - POSTERIOR CAPSULE OPACIFICATION [None]
  - NEPHROLITHIASIS [None]
  - CELLULITIS [None]
  - LEFT VENTRICULAR DYSFUNCTION [None]
  - SEPTIC SHOCK [None]
  - THROMBOCYTOPENIA [None]
  - DIVERTICULUM INTESTINAL [None]
  - HYPERTENSION [None]
  - OSTEOLYSIS [None]
  - ATRIAL FLUTTER [None]
  - ACTINOMYCOSIS [None]
  - BENIGN PROSTATIC HYPERPLASIA [None]
  - HERPES ZOSTER [None]
  - DEHYDRATION [None]
  - DECREASED APPETITE [None]
  - RESTRICTIVE PULMONARY DISEASE [None]
  - ANKLE FRACTURE [None]
  - ORAL HERPES [None]
  - ATRIAL FIBRILLATION [None]
  - ECCHYMOSIS [None]
  - VOMITING [None]
  - NECK PAIN [None]
  - NEOPLASM MALIGNANT [None]
  - MULTIPLE MYELOMA [None]
  - OPEN WOUND [None]
  - COMPRESSION FRACTURE [None]
  - PLEURAL EFFUSION [None]
  - OSTEOMYELITIS [None]
  - SYNCOPE [None]
  - PERIPHERAL SENSORY NEUROPATHY [None]
  - ASTHENIA [None]
  - MITRAL VALVE INCOMPETENCE [None]
  - OPEN ANGLE GLAUCOMA [None]
  - SEPSIS [None]
  - UNRESPONSIVE TO STIMULI [None]
  - ANAEMIA OF MALIGNANT DISEASE [None]
  - DENTAL FISTULA [None]
  - UPPER RESPIRATORY TRACT INFECTION [None]
  - MENIERE'S DISEASE [None]
  - PULMONARY FIBROSIS [None]
  - ATRIOVENTRICULAR BLOCK FIRST DEGREE [None]
  - HEMIPLEGIA [None]
  - CARDIAC FAILURE CONGESTIVE [None]
  - SYMBOLIC DYSFUNCTION [None]
  - ROTATOR CUFF SYNDROME [None]
  - HAND FRACTURE [None]
  - PYREXIA [None]
  - INJURY [None]
  - LUNG INFILTRATION [None]
  - ADRENAL INSUFFICIENCY [None]
  - HYPOVOLAEMIA [None]
  - CUTIS LAXA [None]
  - BLEPHARITIS [None]
  - MULTI-ORGAN FAILURE [None]
  - DECUBITUS ULCER [None]
  - HYPOCALCAEMIA [None]
  - IRON DEFICIENCY ANAEMIA [None]
  - SPINAL OSTEOARTHRITIS [None]
  - INTERVERTEBRAL DISC PROTRUSION [None]
  - ATELECTASIS [None]
  - RESPIRATORY FAILURE [None]
  - RENAL FAILURE [None]
  - CATARACT [None]
  - PRODUCTIVE COUGH [None]
  - CARDIOMEGALY [None]
  - POST HERPETIC NEURALGIA [None]
  - VENTRICULAR TACHYCARDIA [None]
  - TYPE 1 DIABETES MELLITUS [None]
  - AORTIC ARTERIOSCLEROSIS [None]
